FAERS Safety Report 5615637-1 (Version None)
Quarter: 2008Q1

REPORT INFORMATION
  Report Type: 
  Country: None (occurrence: None)
  Receive Date: 20080206
  Receipt Date: 20080129
  Transmission Date: 20080703
  Serious: Yes (Life-Threatening, Hospitalization)
  Sender: FDA-Public Use
  Company Number: B0505155A

PATIENT
  Age: 42 Year
  Sex: Male

DRUGS (2)
  1. AUGMENTIN '125' [Suspect]
     Indication: NAIL BED INFECTION
     Route: 048
     Dates: start: 20080121, end: 20080121
  2. FUSIDIC ACID CREAM [Concomitant]

REACTIONS (11)
  - ANAPHYLACTIC REACTION [None]
  - BLOOD PRESSURE DECREASED [None]
  - BRONCHOSPASM [None]
  - COMA [None]
  - DIZZINESS [None]
  - DYSPNOEA [None]
  - GENERALISED ERYTHEMA [None]
  - HYPERTENSION [None]
  - PRURITUS GENERALISED [None]
  - RASH [None]
  - SWELLING FACE [None]
